FAERS Safety Report 6250864-4 (Version None)
Quarter: 2009Q2

REPORT INFORMATION
  Report Type: 
  Country: None (occurrence: None)
  Receive Date: 20090626
  Receipt Date: 20090616
  Transmission Date: 20091009
  Serious: Yes (Life-Threatening, Hospitalization)
  Sender: FDA-Public Use
  Company Number: 8047937

PATIENT
  Age: 40 Year
  Sex: Male

DRUGS (2)
  1. PREDNISOLONE [Suspect]
  2. ADALIMUMAB [Suspect]
     Dates: start: 20090301, end: 20090501

REACTIONS (2)
  - ACUTE ABDOMEN [None]
  - SEPSIS [None]
